FAERS Safety Report 24808749 (Version 2)
Quarter: 2025Q1

REPORT INFORMATION
  Report Type: Spontaneous
  Country: US (occurrence: US)
  Receive Date: 20250106
  Receipt Date: 20250209
  Transmission Date: 20250408
  Serious: No
  Sender: CSL BEHRING
  Company Number: US-BEH-2025190772

PATIENT

DRUGS (1)
  1. VELTASSA [Suspect]
     Active Substance: PATIROMER
     Route: 065

REACTIONS (4)
  - Nausea [Unknown]
  - Vomiting [Unknown]
  - Product colour issue [Unknown]
  - Product taste abnormal [Unknown]
